FAERS Safety Report 8016273-2 (Version None)
Quarter: 2011Q4

REPORT INFORMATION
  Report Type: 
  Country: None (occurrence: None)
  Receive Date: 20111230
  Receipt Date: 20111227
  Transmission Date: 20120403
  Serious: Yes (Death, Hospitalization, Disabling, Other)
  Sender: FDA-Public Use
  Company Number: US-MERCK-0810USA00408

PATIENT
  Age: 57 Year
  Sex: Female
  Weight: 58 kg

DRUGS (2)
  1. FOSAMAX [Suspect]
     Indication: OSTEOPOROSIS PROPHYLAXIS
     Route: 048
     Dates: start: 19990901, end: 20050101
  2. ZOMETA [Suspect]
     Route: 065
     Dates: start: 20040101

REACTIONS (85)
  - OSTEONECROSIS OF JAW [None]
  - EXOPHTHALMOS [None]
  - METASTASES TO MENINGES [None]
  - METASTASES TO LIVER [None]
  - ALOPECIA [None]
  - DRY MOUTH [None]
  - OEDEMA [None]
  - NEUTROPENIA [None]
  - DACRYOSTENOSIS ACQUIRED [None]
  - URINARY INCONTINENCE [None]
  - SCOLIOSIS [None]
  - DRUG ABUSE [None]
  - EAR DISCOMFORT [None]
  - BREAST DISORDER [None]
  - CENTRAL NERVOUS SYSTEM LESION [None]
  - CERVICAL SPINAL STENOSIS [None]
  - DIPLOPIA [None]
  - IMPAIRED HEALING [None]
  - SYNOVIAL CYST [None]
  - HYPOAESTHESIA [None]
  - LOCAL SWELLING [None]
  - STRESS [None]
  - PERIODONTAL DISEASE [None]
  - GASTRITIS EROSIVE [None]
  - BREAST CANCER METASTATIC [None]
  - METASTASES TO CENTRAL NERVOUS SYSTEM [None]
  - DUODENAL ULCER [None]
  - NIPPLE DISORDER [None]
  - OESOPHAGITIS [None]
  - NEURALGIA [None]
  - VOMITING [None]
  - OSTEITIS [None]
  - HEADACHE [None]
  - METASTASIS [None]
  - MODIFIED RADICAL MASTECTOMY [None]
  - OSTEOMYELITIS [None]
  - OSTEOARTHRITIS [None]
  - MONONEURITIS [None]
  - PYREXIA [None]
  - SKIN TOXICITY [None]
  - FUNGAL INFECTION [None]
  - SKIN ATROPHY [None]
  - OSTEOPENIA [None]
  - MENTAL DISORDER [None]
  - NAUSEA [None]
  - DYSAESTHESIA [None]
  - METASTATIC NEOPLASM [None]
  - ANAEMIA [None]
  - DIVERTICULUM INTESTINAL [None]
  - DENTAL CARIES [None]
  - DYSPEPSIA [None]
  - TOOTH FRACTURE [None]
  - CYSTITIS [None]
  - ADVERSE EVENT [None]
  - DEATH [None]
  - METASTASES TO BONE [None]
  - ORAL DISORDER [None]
  - STAPHYLOCOCCAL INFECTION [None]
  - SKIN HYPERTROPHY [None]
  - TOOTH EXTRACTION [None]
  - ORAL INFECTION [None]
  - BACK PAIN [None]
  - LIPID METABOLISM DISORDER [None]
  - GAIT DISTURBANCE [None]
  - FATIGUE [None]
  - BENIGN NEOPLASM OF SKIN [None]
  - DEPRESSION [None]
  - PAIN IN EXTREMITY [None]
  - HYPERCHOLESTEROLAEMIA [None]
  - HORMONE LEVEL ABNORMAL [None]
  - NECK PAIN [None]
  - RENAL FAILURE CHRONIC [None]
  - POST PROCEDURAL INFECTION [None]
  - OSTEORADIONECROSIS [None]
  - SPINAL OSTEOARTHRITIS [None]
  - DRY EYE [None]
  - DRUG HYPERSENSITIVITY [None]
  - DIARRHOEA [None]
  - SKIN DISORDER [None]
  - ORAL FUNGAL INFECTION [None]
  - SJOGREN'S SYNDROME [None]
  - HIATUS HERNIA [None]
  - ESCHERICHIA INFECTION [None]
  - DYSPNOEA [None]
  - BONE DISORDER [None]
